FAERS Safety Report 8223831-9 (Version None)
Quarter: 2012Q1

REPORT INFORMATION
  Report Type: 
  Country: None (occurrence: None)
  Receive Date: 20120321
  Receipt Date: 20120309
  Transmission Date: 20120608
  Serious: Yes (Hospitalization)
  Sender: FDA-Public Use
  Company Number: US-JNJFOC-20120306681

PATIENT
  Age: 26 Year
  Sex: Male
  Weight: 65.7 kg

DRUGS (5)
  1. CITALOPRAM HYDROBROMIDE [Suspect]
     Indication: PRODUCT USED FOR UNKNOWN INDICATION
     Route: 065
  2. ACETAMINOPHEN [Suspect]
     Route: 048
  3. ACETAMINOPHEN [Suspect]
     Indication: PRODUCT USED FOR UNKNOWN INDICATION
     Route: 048
  4. BENZTROPINE MESYLATE [Suspect]
     Indication: PRODUCT USED FOR UNKNOWN INDICATION
     Route: 065
  5. RISPERIDONE [Suspect]
     Indication: PRODUCT USED FOR UNKNOWN INDICATION
     Route: 065

REACTIONS (7)
  - RENAL FAILURE ACUTE [None]
  - RHABDOMYOLYSIS [None]
  - ANTICHOLINERGIC SYNDROME [None]
  - MULTIPLE DRUG OVERDOSE [None]
  - LOSS OF CONSCIOUSNESS [None]
  - DEHYDRATION [None]
  - SKIN INJURY [None]
